FAERS Safety Report 19163788 (Version 1)
Quarter: 2021Q2

REPORT INFORMATION
  Report Type: Spontaneous
  Country: US (occurrence: US)
  Receive Date: 20210421
  Receipt Date: 20210421
  Transmission Date: 20210717
  Serious: No
  Sender: FDA-Public Use
  Company Number: US-INSMED, INC.-2021-07879-US

PATIENT
  Age: 69 Year

DRUGS (1)
  1. ARIKAYCE [Suspect]
     Active Substance: AMIKACIN
     Indication: ATYPICAL MYCOBACTERIAL INFECTION
     Dosage: 590 MILLIGRAM
     Route: 055

REACTIONS (2)
  - Off label use [Unknown]
  - Haemoptysis [Unknown]

NARRATIVE: CASE EVENT DATE: 20210218
